FAERS Safety Report 5114560-9 (Version None)
Quarter: 2006Q3

REPORT INFORMATION
  Report Type: 
  Country: None (occurrence: None)
  Receive Date: 20060926
  Receipt Date: 20060517
  Transmission Date: 20061208
  Serious: Yes (Death, Hospitalization, Other)
  Sender: FDA-Public Use
  Company Number: PHEH2006US06525

PATIENT
  Age: 82 Year
  Sex: Male

DRUGS (8)
  1. ZOMETA [Suspect]
     Indication: MULTIPLE MYELOMA
     Dosage: 4 MG EVERY MONTH
     Dates: start: 20020901, end: 20051101
  2. DECADRON [Concomitant]
     Indication: MULTIPLE MYELOMA
     Dosage: 40 MG, QD X 4 DYS EVERY MONTH
     Dates: start: 20050601, end: 20051201
  3. VELCADE [Concomitant]
     Indication: MULTIPLE MYELOMA
     Dosage: 1.6 MG FOR 4 DAYS
     Dates: start: 20050101, end: 20060101
  4. THALIDOMIDE [Concomitant]
     Indication: MULTIPLE MYELOMA
     Dosage: 100 MG, QD
     Dates: start: 20020101, end: 20050101
  5. LASIX [Concomitant]
     Indication: FLUID RETENTION
     Dosage: 20 MG, QD
     Dates: start: 20050101, end: 20060101
  6. ACYCLOVIR [Concomitant]
     Indication: HERPES VIRUS INFECTION
     Dosage: 400 MG, BID
     Dates: start: 20010101, end: 20050101
  7. ATENOLOL [Concomitant]
     Indication: BLOOD PRESSURE
     Dosage: 25 MG, QD
     Dates: start: 20010101, end: 20060101
  8. ASPIRIN [Concomitant]
     Dosage: 81 MG, UNK

REACTIONS (10)
  - BONE DISORDER [None]
  - JAW FRACTURE [None]
  - MULTIPLE MYELOMA [None]
  - ORAL PAIN [None]
  - ORAL SOFT TISSUE DISORDER [None]
  - OSTEOMYELITIS [None]
  - OSTEONECROSIS [None]
  - RASH PUSTULAR [None]
  - SOFT TISSUE INFECTION [None]
  - SWELLING [None]
